FAERS Safety Report 18174425 (Version 1)
Quarter: 2020Q3

REPORT INFORMATION
  Report Type: Spontaneous
  Country: US (occurrence: US)
  Receive Date: 20200820
  Receipt Date: 20200820
  Transmission Date: 20201103
  Serious: Yes (Other)
  Sender: FDA-Public Use
  Company Number: None

PATIENT
  Age: 46 Year
  Sex: Female
  Weight: 99 kg

DRUGS (2)
  1. GAMUNEX [Suspect]
     Active Substance: HUMAN IMMUNOGLOBULIN G
     Indication: IMMUNE SYSTEM DISORDER
     Dosage: ?          OTHER FREQUENCY:Q3 WEEKS;?
     Route: 041
     Dates: start: 20200724, end: 20200724
  2. GAMUNEX [Suspect]
     Active Substance: HUMAN IMMUNOGLOBULIN G
     Indication: IMMUNE SYSTEM DISORDER
     Dosage: ?          OTHER FREQUENCY:Q3WEEKS;?
     Route: 041
     Dates: start: 20200724, end: 20200724

REACTIONS (3)
  - Pruritus [None]
  - Throat irritation [None]
  - Hypotension [None]

NARRATIVE: CASE EVENT DATE: 20200702
